FAERS Safety Report 21449938 (Version 1)
Quarter: 2022Q4

REPORT INFORMATION
  Report Type: Spontaneous
  Country: DE (occurrence: DE)
  Receive Date: 20221013
  Receipt Date: 20221013
  Transmission Date: 20230112
  Serious: Yes (Other)
  Sender: FDA-Public Use
  Company Number: None

PATIENT
  Age: 77 Year
  Sex: Female
  Weight: 40 kg

DRUGS (8)
  1. RAMIPRIL [Interacting]
     Active Substance: RAMIPRIL
     Indication: Product used for unknown indication
     Dosage: 2.5 MG, 1X1
  2. NIRMATRELVIR\RITONAVIR [Interacting]
     Active Substance: NIRMATRELVIR\RITONAVIR
     Indication: Product used for unknown indication
     Dosage: 150 MG/100 MG 1-0-1
     Dates: start: 20220706, end: 20220710
  3. TIAPRIDE [Concomitant]
     Active Substance: TIAPRIDE
  4. ASPIRIN [Concomitant]
     Active Substance: ASPIRIN
     Dosage: 1X1
  5. MIRTAZAPINE [Concomitant]
     Active Substance: MIRTAZAPINE
  6. TAMSULOSIN [Concomitant]
     Active Substance: TAMSULOSIN
  7. DARATUMUMAB [Concomitant]
     Active Substance: DARATUMUMAB
     Indication: Plasma cell myeloma
     Dates: end: 20220630
  8. DENOSUMAB [Concomitant]
     Active Substance: DENOSUMAB
     Indication: Osteoporosis
     Dosage: SEMI-ANNUAL INJECTION

REACTIONS (5)
  - Syncope [Recovered/Resolved]
  - Vertigo [Unknown]
  - Drug interaction [Unknown]
  - Fall [Recovered/Resolved]
  - Loss of consciousness [Recovered/Resolved]

NARRATIVE: CASE EVENT DATE: 20220701
